FAERS Safety Report 19372115 (Version 1)
Quarter: 2021Q2

REPORT INFORMATION
  Report Type: Other
  Country: TR (occurrence: TR)
  Receive Date: 20210604
  Receipt Date: 20210604
  Transmission Date: 20210717
  Serious: Yes (Other)
  Sender: FDA-Public Use
  Company Number: TR-ROCHE-2838115

PATIENT

DRUGS (1)
  1. TRASTUZUMAB EMTANSINE [Suspect]
     Active Substance: ADO-TRASTUZUMAB EMTANSINE
     Indication: BREAST CANCER METASTATIC
     Route: 042

REACTIONS (46)
  - Hyponatraemia [Unknown]
  - Portal hypertension [Unknown]
  - Diarrhoea [Unknown]
  - Hypocalcaemia [Unknown]
  - Acute kidney injury [Unknown]
  - Aspartate aminotransferase increased [Unknown]
  - Hypersensitivity [Unknown]
  - Infusion related reaction [Unknown]
  - Hepatic enzyme increased [Unknown]
  - Febrile neutropenia [Unknown]
  - Pain [Unknown]
  - Hyperglycaemia [Unknown]
  - Pneumonitis [Unknown]
  - Stomatitis [Unknown]
  - Hypernatraemia [Unknown]
  - Hypoglycaemia [Unknown]
  - Gamma-glutamyltransferase increased [Unknown]
  - Fatigue [Unknown]
  - Hypokalaemia [Unknown]
  - Hyperkalaemia [Unknown]
  - Nausea [Unknown]
  - Vomiting [Unknown]
  - Thrombocytopenia [Unknown]
  - Neutropenia [Unknown]
  - Anaphylactic reaction [Unknown]
  - Drug intolerance [Unknown]
  - Proteinuria [Unknown]
  - Leukopenia [Unknown]
  - Embolism [Unknown]
  - Hyperuricaemia [Unknown]
  - Alanine aminotransferase increased [Unknown]
  - Palmar-plantar erythrodysaesthesia syndrome [Unknown]
  - Anaemia [Unknown]
  - Hypercalcaemia [Unknown]
  - Paraesthesia [Unknown]
  - Delirium [Unknown]
  - Blood alkaline phosphatase increased [Unknown]
  - Alopecia [Unknown]
  - Hypophosphataemia [Unknown]
  - Hepatic failure [Unknown]
  - Cardiac failure [Unknown]
  - Blood bilirubin increased [Unknown]
  - Hypomagnesaemia [Unknown]
  - Dermatitis acneiform [Unknown]
  - Ejection fraction decreased [Unknown]
  - Cystitis [Unknown]
